FAERS Safety Report 12517855 (Version 1)
Quarter: 2016Q2

REPORT INFORMATION
  Report Type: Spontaneous
  Country: US (occurrence: US)
  Receive Date: 20160630
  Receipt Date: 20160630
  Transmission Date: 20160815
  Serious: Yes (Hospitalization)
  Sender: FDA-Public Use
  Company Number: US-JUBILANT CADISTA PHARMACEUTICALS-2016JUB00252

PATIENT
  Age: 73 Year
  Sex: Male

DRUGS (1)
  1. PREDNISONE. [Suspect]
     Active Substance: PREDNISONE
     Indication: PULMONARY SARCOIDOSIS
     Route: 065

REACTIONS (6)
  - Immunosuppression [Unknown]
  - Loss of consciousness [Unknown]
  - Delirium [Unknown]
  - Cryptococcosis [Unknown]
  - Cerebrovascular accident [Recovering/Resolving]
  - Seizure [Unknown]
